FAERS Safety Report 25023690 (Version 1)
Quarter: 2025Q1

REPORT INFORMATION
  Report Type: Spontaneous
  Country: FI (occurrence: FI)
  Receive Date: 20250228
  Receipt Date: 20250228
  Transmission Date: 20250409
  Serious: Yes (Death, Other)
  Sender: CHEPLAPHARM
  Company Number: FI-CHEPLA-2025000136

PATIENT
  Age: 68 Year
  Sex: Male

DRUGS (10)
  1. OLANZAPINE PAMOATE [Suspect]
     Active Substance: OLANZAPINE PAMOATE
     Indication: Schizophrenia
     Dosage: PC:00300020281558; SN 199010219077/POWDER AND SOLVENT FOR PROLONGES-RELEASE SUSPENSION FOR INJECT...
     Route: 030
     Dates: start: 20220112
  2. ATORVASTATIN [Concomitant]
     Active Substance: ATORVASTATIN
     Dosage: DAILY DOSE: 40 MILLIGRAM
     Route: 048
  3. CARIPRAZINE [Concomitant]
     Active Substance: CARIPRAZINE
     Dosage: DAILY DOSE: 1.5 MILLIGRAM
     Route: 048
  4. MEDROL [Concomitant]
     Active Substance: METHYLPREDNISOLONE
     Dosage: DAILY DOSE: 4 MILLIGRAM
     Route: 048
  5. CELLCEPT [Concomitant]
     Active Substance: MYCOPHENOLATE MOFETIL
     Dosage: 500 MG 1 X 2 MORNING AND EVENING.??DAILY DOSE: 1000 MILLIGRAM
  6. CYCLOSPORINE [Concomitant]
     Active Substance: CYCLOSPORINE
     Dosage: 100 MG ONCE A DAY (MORNING).??DAILY DOSE: 100 MILLIGRAM
     Route: 048
  7. CYCLOSPORINE [Concomitant]
     Active Substance: CYCLOSPORINE
     Dosage: 75 MG ONCE A DAY (EVENING).???DAILY DOSE: 75 MILLIGRAM
  8. SILDENAFIL [Concomitant]
     Active Substance: SILDENAFIL
     Route: 048
  9. CINACALCET [Concomitant]
     Active Substance: CINACALCET
     Dosage: 30 MG 1 X 1 (30 MG) EVERY OTHER DAY.
     Route: 048
  10. CYCLOSPORINE [Concomitant]
     Active Substance: CYCLOSPORINE
     Dosage: DAILY DOSE: 25 MILLIGRAM

REACTIONS (6)
  - Pneumonia aspiration [Fatal]
  - Toxicity to various agents [Unknown]
  - Toxicity to various agents [Fatal]
  - Post-injection delirium sedation syndrome [Unknown]
  - Post-injection delirium sedation syndrome [Unknown]
  - Gait disturbance [Unknown]

NARRATIVE: CASE EVENT DATE: 20221222
